FAERS Safety Report 13143939 (Version 1)
Quarter: 2017Q1

REPORT INFORMATION
  Report Type: Report from Study
  Country: CZ (occurrence: CZ)
  Receive Date: 20170124
  Receipt Date: 20170124
  Transmission Date: 20170428
  Serious: Yes (Death)
  Sender: FDA-Public Use
  Company Number: CZ-PFIZER INC-2017031325

PATIENT
  Age: 67 Year
  Sex: Male
  Weight: 105 kg

DRUGS (9)
  1. MATRIFEN [Concomitant]
     Active Substance: FENTANYL
     Dosage: UNK
     Dates: start: 20170108
  2. AXITINIB [Suspect]
     Active Substance: AXITINIB
     Indication: CLEAR CELL RENAL CELL CARCINOMA
     Dosage: 5 MG, CYCLIC (TWICE DAILY FOR A 28-DAY CYCLE)
     Route: 048
     Dates: start: 20161115, end: 20161211
  3. XGEVA [Concomitant]
     Active Substance: DENOSUMAB
     Indication: METASTASES TO BONE
     Dosage: UNK
     Dates: start: 20140203
  4. TRAMADOL. [Concomitant]
     Active Substance: TRAMADOL
     Indication: PAIN
     Dosage: UNK
     Dates: start: 201604
  5. LACTULOSA [Concomitant]
     Active Substance: LACTULOSE
     Indication: CONSTIPATION
     Dosage: UNK
     Dates: start: 20161129
  6. PERINDOPRIL ARGININE AMLODIPINE BIOPHARMA [Concomitant]
     Indication: HYPERTENSION
     Dosage: UNK
     Dates: start: 201604
  7. AXITINIB [Suspect]
     Active Substance: AXITINIB
     Dosage: 5 MG, CYCLIC (TWICE DAILY FOR A 28-DAY CYCLE)
     Route: 048
     Dates: start: 20161212, end: 20170108
  8. AGEN [Concomitant]
     Indication: HYPERTENSION
     Dosage: UNK
     Dates: start: 20161212
  9. CALCICHEW [Concomitant]
     Active Substance: CALCIUM CARBONATE
     Indication: ELECTROLYTE SUBSTITUTION THERAPY
     Dosage: UNK
     Dates: start: 20161115

REACTIONS (1)
  - Sudden death [Fatal]

NARRATIVE: CASE EVENT DATE: 20170113
